FAERS Safety Report 10177137 (Version 1)
Quarter: 2014Q2

REPORT INFORMATION
  Report Type: Spontaneous
  Country: US (occurrence: None)
  Receive Date: 20140515
  Receipt Date: 20140515
  Transmission Date: 20141212
  Serious: Yes (Other)
  Sender: FDA-Public Use
  Company Number: None

PATIENT
  Age: 31 Year
  Sex: Male
  Weight: 93.44 kg

DRUGS (7)
  1. DULOXETINE [Suspect]
     Indication: DEPRESSION
     Dosage: 2 PILL
     Route: 048
     Dates: start: 20140301, end: 20140514
  2. DULOXETINE [Suspect]
     Indication: ANXIETY
     Dosage: 2 PILL
     Route: 048
     Dates: start: 20140301, end: 20140514
  3. DULOXETINE [Suspect]
     Indication: PAIN
     Dosage: 2 PILL
     Route: 048
     Dates: start: 20140301, end: 20140514
  4. FLONASE [Concomitant]
  5. ADDERALL [Concomitant]
  6. ASPIRIN [Concomitant]
  7. PIROXICAM [Concomitant]

REACTIONS (5)
  - Drug ineffective [None]
  - Product substitution issue [None]
  - Depression [None]
  - Anxiety [None]
  - Pain [None]
